FAERS Safety Report 9930425 (Version 1)
Quarter: 2014Q1

REPORT INFORMATION
  Report Type: Spontaneous
  Country: US (occurrence: US)
  Receive Date: 20140227
  Receipt Date: 20140227
  Transmission Date: 20141002
  Serious: No
  Sender: FDA-Public Use
  Company Number: US-AMGEN-USASP2013085339

PATIENT
  Age: 56 Year
  Sex: Female

DRUGS (24)
  1. ENBREL [Suspect]
     Indication: RHEUMATOID ARTHRITIS
     Dosage: 50 MG, Q7D
     Route: 058
     Dates: start: 201309
  2. CALCIUM CITRATE + D [Concomitant]
     Dosage: UNK
  3. XANAX [Concomitant]
     Dosage: UNK
  4. SOMA [Concomitant]
     Dosage: UNK
  5. LORTAB                             /00607101/ [Concomitant]
     Dosage: UNK
  6. MULTIVITAMINS, PLAIN [Concomitant]
     Dosage: UNK
  7. SULFACETAMIDE                      /00150702/ [Concomitant]
     Dosage: UNK, EYE GTTS
  8. NEURONTIN [Concomitant]
     Dosage: UNK
  9. VOLTAREN                           /00372301/ [Concomitant]
     Dosage: UNK
  10. COSOPT [Concomitant]
     Dosage: UNK
  11. NORVASC [Concomitant]
     Dosage: UNK
  12. TUSSIONEX                          /00004701/ [Concomitant]
     Dosage: UNK
  13. XALATAN [Concomitant]
     Dosage: UNK
  14. BENZONATATE [Concomitant]
     Dosage: UNK
  15. AVAPRO [Concomitant]
     Dosage: UNK
  16. FLAXSEED OIL [Concomitant]
     Dosage: UNK
  17. VITAMIN C                          /00008001/ [Concomitant]
     Dosage: UNK
  18. B12                                /00056201/ [Concomitant]
     Dosage: UNK
  19. D [Concomitant]
     Dosage: UNK
  20. CO Q 10                            /00517201/ [Concomitant]
     Dosage: UNK
  21. GLUCOSAMINE [Concomitant]
     Dosage: UNK
  22. WELLBUTRIN [Concomitant]
     Dosage: UNK
  23. HYDROCHLOROTHIAZIDE [Concomitant]
     Dosage: UNK
  24. RELAFEN [Concomitant]
     Dosage: UNK

REACTIONS (1)
  - Tooth infection [Unknown]
